FAERS Safety Report 5534585-9 (Version None)
Quarter: 2007Q4

REPORT INFORMATION
  Report Type: 
  Country: None (occurrence: None)
  Receive Date: 20071205
  Receipt Date: 20071124
  Transmission Date: 20080405
  Serious: Yes (Hospitalization)
  Sender: FDA-Public Use
  Company Number: US-AMGEN-QUU253843

PATIENT
  Sex: Female

DRUGS (3)
  1. ARANESP [Suspect]
     Indication: RENAL FAILURE CHRONIC
     Route: 058
     Dates: start: 20050101
  2. HYDRALAZINE [Concomitant]
  3. NORVASC [Concomitant]

REACTIONS (10)
  - BLOOD IRON DECREASED [None]
  - BLOOD PRESSURE INCREASED [None]
  - BRONCHITIS [None]
  - CYSTITIS [None]
  - DEHYDRATION [None]
  - FLUID IMBALANCE [None]
  - NASOPHARYNGITIS [None]
  - PNEUMONIA [None]
  - PULMONARY OEDEMA [None]
  - RENAL IMPAIRMENT [None]
